FAERS Safety Report 16040465 (Version 1)
Quarter: 2019Q2

REPORT INFORMATION
  Report Type: Spontaneous
  Country: US (occurrence: US)
  Receive Date: 20190305
  Receipt Date: 20190305
  Transmission Date: 20190711
  Serious: No
  Sender: FDA-Public Use
  Company Number: None

PATIENT
  Age: 23 Year
  Sex: Female
  Weight: 74.8 kg

DRUGS (8)
  1. EPIDIOLEX [Suspect]
     Active Substance: CANNABIDIOL
     Indication: EPILEPSY
     Route: 048
     Dates: start: 20190304, end: 20190304
  2. VIMPAT [Concomitant]
     Active Substance: LACOSAMIDE
  3. RANITIDINE. [Concomitant]
     Active Substance: RANITIDINE
  4. ONFI [Concomitant]
     Active Substance: CLOBAZAM
  5. ALBUTEROL. [Concomitant]
     Active Substance: ALBUTEROL
  6. BRIVARACETAM [Concomitant]
     Active Substance: BRIVARACETAM
  7. DEPO-PROVERA [Concomitant]
     Active Substance: MEDROXYPROGESTERONE ACETATE
  8. CIALOPRAM [Concomitant]

REACTIONS (4)
  - Allergic reaction to excipient [None]
  - Urticaria [None]
  - Product formulation issue [None]
  - Throat tightness [None]

NARRATIVE: CASE EVENT DATE: 20190304
